FAERS Safety Report 23327108 (Version 1)
Quarter: 2023Q4

REPORT INFORMATION
  Report Type: Spontaneous
  Country: US (occurrence: None)
  Receive Date: 20231221
  Receipt Date: 20231221
  Transmission Date: 20240110
  Serious: No
  Sender: FDA-Public Use
  Company Number: None

PATIENT
  Age: 53 Year
  Sex: Female
  Weight: 72 kg

DRUGS (1)
  1. BOTOX [Suspect]
     Active Substance: ONABOTULINUMTOXINA
     Dates: start: 20231207

REACTIONS (7)
  - Heart rate increased [None]
  - Blood pressure increased [None]
  - Dizziness [None]
  - Dry mouth [None]
  - Dry eye [None]
  - Headache [None]
  - Chest pain [None]

NARRATIVE: CASE EVENT DATE: 20231207
